FAERS Safety Report 21254040 (Version 3)
Quarter: 2024Q4

REPORT INFORMATION
  Report Type: Spontaneous
  Country: IN (occurrence: IN)
  Receive Date: 20220825
  Receipt Date: 20241212
  Transmission Date: 20250115
  Serious: Yes (Other)
  Sender: PFIZER
  Company Number: IN-PFIZER INC-2021017561

PATIENT
  Age: 81 Year
  Sex: Male

DRUGS (1)
  1. SUTENT [Suspect]
     Active Substance: SUNITINIB MALATE
     Indication: Metastatic renal cell carcinoma
     Dosage: 25 MG, ONCE DAILY FOR 2 WEEKS, 1 WEEK GAP
     Route: 048
     Dates: start: 2009

REACTIONS (7)
  - Seizure [Unknown]
  - Cholecystectomy [Unknown]
  - Eye operation [Unknown]
  - Oliguria [Unknown]
  - Pyrexia [Unknown]
  - Epistaxis [Unknown]
  - Blood pressure increased [Unknown]

NARRATIVE: CASE EVENT DATE: 20240101
